FAERS Safety Report 19035480 (Version 3)
Quarter: 2021Q3

REPORT INFORMATION
  Report Type: Spontaneous
  Country: SE (occurrence: SE)
  Receive Date: 20210320
  Receipt Date: 20210709
  Transmission Date: 20211014
  Serious: Yes (Other)
  Sender: FDA-Public Use
  Company Number: SE-MYLANLABS-2021M1016887

PATIENT
  Age: 50 Year
  Sex: Female

DRUGS (2)
  1. SULINDAC. [Concomitant]
     Active Substance: SULINDAC
     Dosage: UNK
  2. LOPERAMIDE [Suspect]
     Active Substance: LOPERAMIDE
     Indication: DIARRHOEA
     Dosage: UNK

REACTIONS (4)
  - Vomiting [Recovered/Resolved]
  - Pancreatitis [Recovered/Resolved]
  - Abdominal pain upper [Recovered/Resolved]
  - Nausea [Recovered/Resolved]
